FAERS Safety Report 4910504-0 (Version None)
Quarter: 2006Q1

REPORT INFORMATION
  Report Type: 
  Country: None (occurrence: None)
  Receive Date: 20060209
  Receipt Date: 20060130
  Transmission Date: 20060701
  Serious: Yes (Hospitalization)
  Sender: FDA-Public Use
  Company Number: SGB1-2006-00063

PATIENT
  Age: 75 Year
  Sex: Female

DRUGS (1)
  1. LANTHANUM CARBONATE (LANTHANUM CARBONATE) TABLET CHEWABLE [Suspect]
     Indication: HYPERPHOSPHATAEMIA
     Dosage: ORAL
     Route: 048
     Dates: start: 20050503

REACTIONS (1)
  - CARDIAC FAILURE [None]
